FAERS Safety Report 7607555-4 (Version None)
Quarter: 2011Q3

REPORT INFORMATION
  Report Type: 
  Country: None (occurrence: None)
  Receive Date: 20110713
  Receipt Date: 20110415
  Transmission Date: 20111222
  Serious: No
  Sender: FDA-Public Use
  Company Number: US-BAYER-2011-033773

PATIENT
  Age: 25 Year
  Sex: Female
  Weight: 79 kg

DRUGS (2)
  1. LORATADINE [Concomitant]
     Dosage: BOTTLE COUNT 80S
     Dates: start: 20110415
  2. ALEVE (CAPLET) [Suspect]
     Indication: HEADACHE
     Dosage: BOTTLE COUNT 80S.
     Route: 048
     Dates: start: 20110415

REACTIONS (1)
  - HEADACHE [None]
